FAERS Safety Report 19217112 (Version 2)
Quarter: 2021Q4

REPORT INFORMATION
  Report Type: Spontaneous
  Country: US (occurrence: US)
  Receive Date: 20210505
  Receipt Date: 20211113
  Transmission Date: 20220303
  Serious: No
  Sender: FDA-Public Use
  Company Number: US-NOVARTISTESTPH-NVSC2021US094212

PATIENT
  Sex: Male

DRUGS (1)
  1. OMNITROPE [Suspect]
     Active Substance: SOMATROPIN
     Indication: Epiphysitis
     Dosage: 1.2 MG, QD
     Route: 058
     Dates: start: 20210413

REACTIONS (2)
  - Incorrect dose administered [Unknown]
  - Device leakage [Recovered/Resolved]
